FAERS Safety Report 8282811-8 (Version None)
Quarter: 2012Q2

REPORT INFORMATION
  Report Type: 
  Country: None (occurrence: None)
  Receive Date: 20120410
  Receipt Date: 20120329
  Transmission Date: 20120825
  Serious: Yes (Other)
  Sender: FDA-Public Use
  Company Number: DSA_55670_2012

PATIENT
  Sex: Female

DRUGS (4)
  1. BROMAZANIL (BROMAZANIL - BROMAZEPAM) 10 MG (NOT SPECIFIED) [Suspect]
     Indication: PRODUCT USED FOR UNKNOWN INDICATION
     Dosage: 60 MG 1X, NOT THE PRESCRIBED AMOUNT ORAL
     Route: 048
     Dates: start: 20120309, end: 20120309
  2. BUPROPION HYDROCHLORIDE [Suspect]
     Indication: PRODUCT USED FOR UNKNOWN INDICATION
     Dosage: 3000 MG 1X, NOT PRESCRIBED AMOUNT ORAL
     Route: 048
     Dates: start: 20120309, end: 20120309
  3. VENLAFAXINE HCL [Suspect]
     Indication: PRODUCT USED FOR UNKNOWN INDICATION
     Dosage: 375 MG 1X, NOT THE PRESCRIBED AMOUNT ORAL
     Route: 048
     Dates: start: 20120309, end: 20120309
  4. ALCOHOL (ALCOHOL - ETHANOL) [Suspect]
     Indication: PRODUCT USED FOR UNKNOWN INDICATION
     Dosage: DF ORAL
     Route: 048
     Dates: start: 20120309, end: 20120309

REACTIONS (8)
  - TACHYCARDIA [None]
  - VOMITING [None]
  - CONFUSIONAL STATE [None]
  - COMA [None]
  - NAUSEA [None]
  - DIASTOLIC HYPOTENSION [None]
  - SUICIDE ATTEMPT [None]
  - MULTIPLE DRUG OVERDOSE INTENTIONAL [None]
